FAERS Safety Report 10698157 (Version 2)
Quarter: 2015Q1

REPORT INFORMATION
  Report Type: Spontaneous
  Country: FR (occurrence: FR)
  Receive Date: 20150108
  Receipt Date: 20150205
  Transmission Date: 20150721
  Serious: Yes (Hospitalization)
  Sender: FDA-Public Use
  Company Number: FR-SA-2014SA179583

PATIENT
  Age: 98 Year
  Sex: Female

DRUGS (10)
  1. ADANCOR [Concomitant]
     Active Substance: NICORANDIL
     Dosage: SCORED TABLET
     Route: 048
     Dates: start: 2010
  2. COZAAR [Concomitant]
     Active Substance: LOSARTAN POTASSIUM
     Route: 048
     Dates: start: 2010
  3. NITRIDERM TTS [Concomitant]
     Active Substance: NITROGLYCERIN
     Route: 062
     Dates: start: 2010
  4. LASILIX SPECIAL [Suspect]
     Active Substance: FUROSEMIDE
     Dosage: SCORED TABLET
     Route: 048
     Dates: start: 2010, end: 20140317
  5. SELOKEN [Concomitant]
     Active Substance: METOPROLOL
     Dosage: PROLONGED RELEASE TABLET
     Route: 048
     Dates: start: 2010
  6. DAONIL [Concomitant]
     Active Substance: GLYBURIDE
     Route: 048
  7. PREDNISONE. [Concomitant]
     Active Substance: PREDNISONE
     Indication: POLYARTHRITIS
     Dosage: SCORED TABLET.
     Dates: start: 20140307, end: 20140317
  8. OMEPRAZOLE. [Concomitant]
     Active Substance: OMEPRAZOLE
     Route: 048
     Dates: start: 20140307
  9. KARDEGIC [Concomitant]
     Active Substance: ASPIRIN LYSINE
     Route: 048
     Dates: start: 20140304
  10. PARACETAMOL [Concomitant]
     Active Substance: ACETAMINOPHEN
     Route: 048
     Dates: start: 2010

REACTIONS (3)
  - Confusional state [Recovered/Resolved]
  - Fall [Recovered/Resolved]
  - Hyponatraemia [Recovered/Resolved]

NARRATIVE: CASE EVENT DATE: 20140317
